FAERS Safety Report 11337694 (Version 1)
Quarter: 2015Q3

REPORT INFORMATION
  Report Type: Spontaneous
  Country: US (occurrence: US)
  Receive Date: 20150803
  Receipt Date: 20150803
  Transmission Date: 20151125
  Serious: Yes (Other)
  Sender: FDA-Public Use
  Company Number: US-ELI_LILLY_AND_COMPANY-US200911000678

PATIENT
  Age: 22 Year
  Sex: Male

DRUGS (4)
  1. ZYPREXA ZYDIS [Suspect]
     Active Substance: OLANZAPINE
     Dosage: 5 MG, UNK
     Dates: start: 20040326
  2. ABILIFY [Concomitant]
     Active Substance: ARIPIPRAZOLE
     Indication: SCHIZOPHRENIA
     Dosage: 20 MG, UNK
  3. ZYPREXA ZYDIS [Suspect]
     Active Substance: OLANZAPINE
     Dosage: 15 MG, UNK
  4. COCAINE HYDROCHLORIDE. [Concomitant]
     Active Substance: COCAINE HYDROCHLORIDE

REACTIONS (2)
  - Diabetes mellitus [Not Recovered/Not Resolved]
  - Diabetic ketoacidosis [Recovered/Resolved]
